FAERS Safety Report 8054665-6 (Version None)
Quarter: 2012Q1

REPORT INFORMATION
  Report Type: 
  Country: None (occurrence: None)
  Receive Date: 20120119
  Receipt Date: 20120112
  Transmission Date: 20120608
  Serious: No
  Sender: FDA-Public Use
  Company Number: US-PFIZER INC-2012002729

PATIENT
  Sex: Female
  Weight: 64.853 kg

DRUGS (4)
  1. PHENIRAMINE [Concomitant]
     Dosage: UNK
  2. LYRICA [Suspect]
     Indication: FIBROMYALGIA
     Dosage: 75 MG, 1X/DAY
     Route: 048
     Dates: start: 20080101
  3. PERCOCET [Concomitant]
     Indication: BREAKTHROUGH PAIN
     Dosage: UNK
  4. LEVATOL [Concomitant]
     Dosage: UNK

REACTIONS (2)
  - DIZZINESS [None]
  - EUPHORIC MOOD [None]
